FAERS Safety Report 8904140 (Version 1)
Quarter: 2012Q4

REPORT INFORMATION
  Report Type: Report from Study
  Country: GR (occurrence: GR)
  Receive Date: 20121112
  Receipt Date: 20121112
  Transmission Date: 20130627
  Serious: Yes (Other)
  Sender: FDA-Public Use
  Company Number: GR-BAYER-2012-117696

PATIENT
  Age: 81 Year
  Sex: Male

DRUGS (3)
  1. ACETYLSALICYLIC ACID [Suspect]
  2. MEDIGOXIN [Suspect]
  3. TERAZOSIN [Suspect]

REACTIONS (1)
  - Pemphigoid [None]
